FAERS Safety Report 13154755 (Version 1)
Quarter: 2017Q1

REPORT INFORMATION
  Report Type: Report from Study
  Country: US (occurrence: US)
  Receive Date: 20170126
  Receipt Date: 20170126
  Transmission Date: 20170428
  Serious: No
  Sender: FDA-Public Use
  Company Number: US-AMGEN-USASL2016151915

PATIENT
  Age: 65 Year
  Sex: Male

DRUGS (3)
  1. DEXAMETHASONE. [Concomitant]
     Active Substance: DEXAMETHASONE
     Dosage: 20 MG, UNK
  2. KYPROLIS [Suspect]
     Active Substance: CARFILZOMIB
     Indication: PLASMA CELL MYELOMA
     Dosage: UNK
     Route: 065
     Dates: end: 20160901
  3. POMALYST [Concomitant]
     Active Substance: POMALIDOMIDE
     Dosage: UNK

REACTIONS (7)
  - Joint swelling [Unknown]
  - Blood pressure increased [Unknown]
  - Adverse drug reaction [Unknown]
  - Fluid overload [Recovered/Resolved]
  - Fatigue [Recovered/Resolved]
  - Tremor [Not Recovered/Not Resolved]
  - Dyspnoea exertional [Not Recovered/Not Resolved]
